FAERS Safety Report 26181386 (Version 1)
Quarter: 2025Q4

REPORT INFORMATION
  Report Type: Spontaneous
  Country: US (occurrence: US)
  Receive Date: 20251221
  Receipt Date: 20251221
  Transmission Date: 20260117
  Serious: Yes (Other)
  Sender: LEO PHARM
  Company Number: US-LEO Pharma-385146

PATIENT
  Sex: Female

DRUGS (2)
  1. CALCIPOTRIENE [Suspect]
     Active Substance: CALCIPOTRIENE
     Indication: Product used for unknown indication
  2. EFUDEX [Suspect]
     Active Substance: FLUOROURACIL
     Indication: Neoplasm malignant

REACTIONS (7)
  - Mouth swelling [Unknown]
  - Incorrect route of product administration [Unknown]
  - Pruritus [Unknown]
  - Visual impairment [Unknown]
  - Eyelid margin crusting [Unknown]
  - Facial paralysis [Unknown]
  - Swelling face [Unknown]
